FAERS Safety Report 7344582-9 (Version None)
Quarter: 2011Q1

REPORT INFORMATION
  Report Type: 
  Country: None (occurrence: None)
  Receive Date: 20110310
  Receipt Date: 20110218
  Transmission Date: 20110831
  Serious: No
  Sender: FDA-Public Use
  Company Number: US-B.I. PHARMACEUTICALS,INC./RIDGEFIELD-2011-BP-06183BP

PATIENT
  Age: 67 Year
  Sex: Male

DRUGS (4)
  1. PRADAXA [Suspect]
     Indication: ATRIAL FIBRILLATION
     Dosage: 300 MG
     Route: 048
     Dates: start: 20110201
  2. PLAVIX [Concomitant]
     Indication: CARDIAC DISORDER
     Dates: start: 20070101
  3. ISOSORBIDE DINITRATE [Concomitant]
     Indication: CARDIAC DISORDER
     Dates: start: 20070101
  4. METOPROLOL [Concomitant]
     Indication: CARDIAC DISORDER
     Dates: start: 20070101

REACTIONS (1)
  - HYPOAESTHESIA [None]
